FAERS Safety Report 11176702 (Version 1)
Quarter: 2015Q2

REPORT INFORMATION
  Report Type: Spontaneous
  Country: US (occurrence: None)
  Receive Date: 20150608
  Receipt Date: 20150608
  Transmission Date: 20150821
  Serious: Yes (Hospitalization)
  Sender: FDA-Public Use
  Company Number: COM-003273

PATIENT
  Age: 76 Year
  Sex: Male
  Weight: 82.1 kg

DRUGS (1)
  1. PEPTIC RELIEF ORIGINAL STRENGTH [Suspect]
     Active Substance: BISMUTH SUBSALICYLATE
     Indication: OESOPHAGEAL PAIN
     Dosage: 2 TABLESPOONS TWICE DAILY, ORAL?
     Route: 048
     Dates: start: 20150516, end: 20150529

REACTIONS (1)
  - Faeces discoloured [None]

NARRATIVE: CASE EVENT DATE: 20150529
